FAERS Safety Report 10612385 (Version 2)
Quarter: 2014Q4

REPORT INFORMATION
  Report Type: Report from Study
  Country: DE (occurrence: DE)
  Receive Date: 20141127
  Receipt Date: 20141127
  Transmission Date: 20150529
  Serious: Yes (Hospitalization)
  Sender: FDA-Public Use
  Company Number: DE-009507513-1409DEU000664

PATIENT
  Age: 53 Year
  Sex: Female

DRUGS (6)
  1. CELSENTRI [Suspect]
     Active Substance: MARAVIROC
     Indication: HIV INFECTION
     Dosage: 150 MG, 1-0-1
     Route: 048
     Dates: start: 20090609
  2. LOPINAVIR [Suspect]
     Active Substance: LOPINAVIR
     Indication: HIV INFECTION
     Dosage: 2 DF, 2-0-2
     Route: 048
     Dates: start: 20090609
  3. DEKRISTOL [Concomitant]
     Active Substance: CHOLECALCIFEROL
     Dosage: 20000 IE 7+ WODLE
     Route: 048
     Dates: start: 20140502
  4. IMODIUM [Concomitant]
     Active Substance: LOPERAMIDE HYDROCHLORIDE
     Dosage: UNK, PRN
     Dates: start: 20120810
  5. RALTEGRAVIR POTASSIUM [Suspect]
     Active Substance: RALTEGRAVIR POTASSIUM
     Indication: HIV INFECTION
     Dosage: 400 MG, 1-0-1
     Route: 048
     Dates: start: 20090609
  6. TRUVADA [Suspect]
     Active Substance: EMTRICITABINE\TENOFOVIR DISOPROXIL FUMARATE
     Indication: HIV INFECTION
     Dosage: 1 DF, 1X1
     Route: 048
     Dates: start: 20090609

REACTIONS (1)
  - Fibula fracture [Recovering/Resolving]

NARRATIVE: CASE EVENT DATE: 20140827
